FAERS Safety Report 17725574 (Version 1)
Quarter: 2020Q2

REPORT INFORMATION
  Report Type: Spontaneous
  Country: ES (occurrence: ES)
  Receive Date: 20200429
  Receipt Date: 20200429
  Transmission Date: 20200714
  Serious: Yes (Hospitalization)
  Sender: FDA-Public Use
  Company Number: ES-MYLANLABS-2020M1041903

PATIENT
  Age: 81 Year
  Sex: Female

DRUGS (6)
  1. OMEPRAZOL                          /00661201/ [Concomitant]
     Active Substance: OMEPRAZOLE
     Indication: PRIMARY BILIARY CHOLANGITIS
     Dosage: UNK
     Route: 048
  2. TRAMADOL HYDROCHLORIDE. [Concomitant]
     Active Substance: TRAMADOL HYDROCHLORIDE
     Indication: PAIN
     Dosage: UNK
     Route: 048
  3. ATORVASTATINA                      /01326101/ [Concomitant]
     Active Substance: ATORVASTATIN
     Indication: DYSLIPIDAEMIA
     Dosage: UNK
     Route: 048
  4. URSOBILANE [Concomitant]
     Indication: PRIMARY BILIARY CHOLANGITIS
     Dosage: UNK
     Route: 048
  5. ESPIRONOLACTONA [Suspect]
     Active Substance: SPIRONOLACTONE
     Indication: ASCITES
     Dosage: 50 MILLIGRAM, QD
     Route: 048
     Dates: start: 20191224, end: 20200121
  6. TORASEMIDE [Suspect]
     Active Substance: TORSEMIDE
     Indication: OEDEMA
     Dosage: UNK
     Route: 048
     Dates: start: 2019, end: 20200121

REACTIONS (3)
  - Thrombocytopenia [Recovered/Resolved]
  - Agranulocytosis [Recovered/Resolved]
  - Bicytopenia [Recovered/Resolved]

NARRATIVE: CASE EVENT DATE: 20200116
